FAERS Safety Report 13447585 (Version 2)
Quarter: 2017Q2

REPORT INFORMATION
  Report Type: Spontaneous
  Country: LB (occurrence: LB)
  Receive Date: 20170417
  Receipt Date: 20170426
  Transmission Date: 20170830
  Serious: Yes (Hospitalization, Other)
  Sender: FDA-Public Use
  Company Number: LB-GLAXOSMITHKLINE-LB2017GSK053740

PATIENT
  Age: 28 Year
  Sex: Female

DRUGS (5)
  1. ANAFRANIL [Suspect]
     Active Substance: CLOMIPRAMINE HYDROCHLORIDE
  2. LAMICTAL [Suspect]
     Active Substance: LAMOTRIGINE
     Indication: BIPOLAR DISORDER
     Dosage: 25 MG, 1D
     Route: 048
     Dates: start: 20170303
  3. LAMICTAL [Suspect]
     Active Substance: LAMOTRIGINE
     Dosage: 75 MG, QD
     Route: 048
  4. LAMICTAL [Suspect]
     Active Substance: LAMOTRIGINE
     Dosage: 50 MG, QD
     Route: 048
  5. DEPAKINE [Concomitant]
     Active Substance: VALPROATE SODIUM
     Indication: BIPOLAR DISORDER

REACTIONS (7)
  - Pyrexia [Recovered/Resolved]
  - Off label use [Unknown]
  - Skin exfoliation [Recovering/Resolving]
  - Stevens-Johnson syndrome [Recovering/Resolving]
  - Rash [Recovered/Resolved]
  - Skin lesion [Recovering/Resolving]
  - Lymphadenopathy [Recovered/Resolved]

NARRATIVE: CASE EVENT DATE: 20170318
